FAERS Safety Report 7422211-3 (Version None)
Quarter: 2011Q2

REPORT INFORMATION
  Report Type: 
  Country: None (occurrence: None)
  Receive Date: 20110418
  Receipt Date: 20110405
  Transmission Date: 20111010
  Serious: Yes (Hospitalization)
  Sender: FDA-Public Use
  Company Number: IN-MYLANLABS-2011S1007272

PATIENT
  Age: 25 Year
  Sex: Male

DRUGS (1)
  1. PHENYTOIN [Suspect]
     Indication: BRAIN INJURY
     Route: 065

REACTIONS (1)
  - APLASIA PURE RED CELL [None]
